FAERS Safety Report 20170488 (Version 1)
Quarter: 2021Q4

REPORT INFORMATION
  Report Type: Spontaneous
  Country: GB (occurrence: GB)
  Receive Date: 20211210
  Receipt Date: 20211210
  Transmission Date: 20220304
  Serious: Yes (Other)
  Sender: FDA-Public Use
  Company Number: GB-OTSUKA-2021_042345

PATIENT
  Sex: Male

DRUGS (1)
  1. ABILIFY [Suspect]
     Active Substance: ARIPIPRAZOLE
     Indication: Product used for unknown indication
     Dosage: UNK
     Route: 065
     Dates: start: 2008

REACTIONS (5)
  - Dependence [Unknown]
  - Obsessive-compulsive personality disorder [Unknown]
  - Violence-related symptom [Unknown]
  - Gambling [Unknown]
  - Imprisonment [Unknown]
